FAERS Safety Report 7543847-5 (Version None)
Quarter: 2011Q2

REPORT INFORMATION
  Report Type: 
  Country: None (occurrence: None)
  Receive Date: 20110613
  Receipt Date: 20110606
  Transmission Date: 20111010
  Serious: Yes (Hospitalization, Other)
  Sender: FDA-Public Use
  Company Number: US-US-EMD SERONO, INC.-7022072

PATIENT
  Sex: Female

DRUGS (2)
  1. REBIF [Suspect]
     Indication: SECONDARY PROGRESSIVE MULTIPLE SCLEROSIS
     Route: 058
     Dates: start: 20081224
  2. REBIF [Suspect]
     Route: 058

REACTIONS (13)
  - INJECTION SITE ERYTHEMA [None]
  - INJECTION SITE WARMTH [None]
  - INJECTION SITE SWELLING [None]
  - HAEMATOMA [None]
  - OEDEMA PERIPHERAL [None]
  - ERYTHEMA [None]
  - ARTHROPOD BITE [None]
  - PYREXIA [None]
  - MYALGIA [None]
  - LOCALISED INFECTION [None]
  - DRUG HYPERSENSITIVITY [None]
  - STAPHYLOCOCCAL INFECTION [None]
  - CHILLS [None]
